FAERS Safety Report 7525945-5 (Version None)
Quarter: 2011Q2

REPORT INFORMATION
  Report Type: 
  Country: None (occurrence: None)
  Receive Date: 20110606
  Receipt Date: 20110528
  Transmission Date: 20111010
  Serious: Yes (Hospitalization)
  Sender: FDA-Public Use
  Company Number: KR-AMGEN-KORCT2011027687

PATIENT
  Age: 54 Year
  Sex: Male
  Weight: 70 kg

DRUGS (9)
  1. LACTICARE HC [Concomitant]
     Indication: SKIN DISORDER
     Dosage: UNK
     Route: 050
     Dates: start: 20110426
  2. GASMOTIN [Concomitant]
     Indication: PROPHYLAXIS OF NAUSEA AND VOMITING
     Dosage: UNK
     Route: 048
     Dates: start: 20110511
  3. MINOCIN [Concomitant]
     Indication: BACILLUS INFECTION
     Dosage: UNK
     Route: 048
     Dates: start: 20110426
  4. DICHLOZID [Concomitant]
     Indication: HYPERTENSION
     Dosage: UNK
     Route: 048
     Dates: start: 20110426
  5. NORVASC [Concomitant]
     Indication: HYPERTENSION
     Dosage: UNK
     Route: 048
     Dates: start: 20110412
  6. PANITUMUMAB [Suspect]
     Indication: COLORECTAL CANCER METASTATIC
     Dosage: 420 MG, UNK
     Dates: start: 20110412
  7. MAGNESIUM OXIDE [Concomitant]
     Indication: SUPPLEMENTATION THERAPY
     Dosage: UNK
     Route: 048
     Dates: start: 20110412
  8. OXYCONTIN [Concomitant]
     Indication: PAIN
     Dosage: UNK
     Route: 048
     Dates: start: 20110412
  9. HEPARIN [Concomitant]
     Dosage: UNK
     Route: 042
     Dates: start: 20110412

REACTIONS (2)
  - ELECTROLYTE IMBALANCE [None]
  - ASTHENIA [None]
